FAERS Safety Report 4599071-1 (Version None)
Quarter: 2005Q1

REPORT INFORMATION
  Report Type: 
  Country: None (occurrence: None)
  Receive Date: 20050302
  Receipt Date: 20050215
  Transmission Date: 20050727
  Serious: Yes (Congenital Anomaly)
  Sender: FDA-Public Use
  Company Number: 230001L05CAN

PATIENT
  Sex: Female

DRUGS (1)
  1. RECOMBINANT HUMAN INTERFERON BETA-1A (INTERFERON BETA) [Suspect]
     Indication: MULTIPLE SCLEROSIS

REACTIONS (6)
  - ABORTION SPONTANEOUS [None]
  - CONGENITAL ANOMALY [None]
  - DRUG EXPOSURE DURING PREGNANCY [None]
  - INTRA-UTERINE DEATH [None]
  - TRISOMY 21 [None]
  - X-LINKED CHROMOSOMAL DISORDER [None]
